FAERS Safety Report 14270260 (Version 1)
Quarter: 2017Q4

REPORT INFORMATION
  Report Type: Spontaneous
  Country: US (occurrence: US)
  Receive Date: 20171211
  Receipt Date: 20171211
  Transmission Date: 20180321
  Serious: Yes (Hospitalization, Other)
  Sender: FDA-Public Use
  Company Number: US-OTSUKA-2015_011640

PATIENT

DRUGS (1)
  1. ABILIFY [Suspect]
     Active Substance: ARIPIPRAZOLE
     Indication: MAJOR DEPRESSION
     Dosage: 30 MG, UNK
     Route: 065

REACTIONS (4)
  - Malaise [Unknown]
  - Fatigue [Unknown]
  - Hospitalisation [Unknown]
  - Seizure [Unknown]
